FAERS Safety Report 6524218-7 (Version None)
Quarter: 2009Q4

REPORT INFORMATION
  Report Type: 
  Country: None (occurrence: None)
  Receive Date: 20091230
  Receipt Date: 20091230
  Transmission Date: 20100525
  Serious: Yes (Life-Threatening)
  Sender: FDA-Public Use
  Company Number: None

PATIENT
  Sex: Female
  Weight: 99.7913 kg

DRUGS (1)
  1. FEMARA [Suspect]
     Indication: BREAST CANCER
     Dosage: 25 MG 1XDAY P.O.
     Route: 048
     Dates: start: 20090815, end: 20090901

REACTIONS (9)
  - ANAEMIA [None]
  - ANXIETY [None]
  - DECREASED APPETITE [None]
  - HYPOTHYROIDISM [None]
  - INSOMNIA [None]
  - MALIGNANT NEOPLASM PROGRESSION [None]
  - PANIC ATTACK [None]
  - SUICIDAL IDEATION [None]
  - WEIGHT DECREASED [None]
